APPROVED DRUG PRODUCT: ATENOLOL
Active Ingredient: ATENOLOL
Strength: 50MG
Dosage Form/Route: TABLET;ORAL
Application: A074101 | Product #002
Applicant: PLIVA INC
Approved: Jul 17, 1997 | RLD: No | RS: No | Type: DISCN